FAERS Safety Report 6323722-4 (Version None)
Quarter: 2009Q3

REPORT INFORMATION
  Report Type: 
  Country: None (occurrence: None)
  Receive Date: 20090824
  Receipt Date: 20090604
  Transmission Date: 20100115
  Serious: No
  Sender: FDA-Public Use
  Company Number: US-ABBOTT-09P-163-0578424-00

PATIENT
  Sex: Male
  Weight: 79.45 kg

DRUGS (7)
  1. NIASPAN [Suspect]
     Indication: HIGH DENSITY LIPOPROTEIN DECREASED
     Route: 048
     Dates: start: 20070101
  2. NIASPAN [Suspect]
     Route: 048
     Dates: start: 20090601
  3. NIASPAN [Suspect]
     Dosage: DRUG INCREASED
     Route: 048
  4. ASPIRIN [Suspect]
     Indication: CARDIAC DISORDER
     Route: 048
     Dates: start: 20090601
  5. ASPIRIN [Suspect]
     Route: 048
     Dates: end: 20090501
  6. ISOSORBIDE DINITRATE [Concomitant]
     Indication: DRUG USE FOR UNKNOWN INDICATION
     Route: 048
  7. UNKNOWN BLOOD PRESSURE MEDICATION [Concomitant]
     Indication: HYPERTENSION

REACTIONS (3)
  - BLOOD URINE PRESENT [None]
  - FLUSHING [None]
  - URINARY BLADDER HAEMORRHAGE [None]
